FAERS Safety Report 7978479-8 (Version None)
Quarter: 2011Q4

REPORT INFORMATION
  Report Type: 
  Country: None (occurrence: None)
  Receive Date: 20111207
  Receipt Date: 20111125
  Transmission Date: 20120403
  Serious: Yes (Hospitalization)
  Sender: FDA-Public Use
  Company Number: 2011SP039300

PATIENT
  Age: 44 Year
  Sex: Female
  Weight: 53 kg

DRUGS (8)
  1. TEMODAL [Suspect]
     Indication: ANAPLASTIC ASTROCYTOMA
     Dosage: 75 MG/M2;QD;PO, 150 MG/M2;QD;PO, 200 MG/M2;QD;PO, 200 MG/M2;QD;PO
     Route: 048
     Dates: start: 20070305, end: 20070415
  2. TEMODAL [Suspect]
     Indication: ANAPLASTIC ASTROCYTOMA
     Dosage: 75 MG/M2;QD;PO, 150 MG/M2;QD;PO, 200 MG/M2;QD;PO, 200 MG/M2;QD;PO
     Route: 048
     Dates: start: 20070514, end: 20080111
  3. TEMODAL [Suspect]
     Indication: ANAPLASTIC ASTROCYTOMA
     Dosage: 75 MG/M2;QD;PO, 150 MG/M2;QD;PO, 200 MG/M2;QD;PO, 200 MG/M2;QD;PO
     Route: 048
     Dates: start: 20080204, end: 20090717
  4. TEMODAL [Suspect]
     Indication: ANAPLASTIC ASTROCYTOMA
     Dosage: 75 MG/M2;QD;PO, 150 MG/M2;QD;PO, 200 MG/M2;QD;PO, 200 MG/M2;QD;PO
     Route: 048
     Dates: start: 20090818, end: 20100622
  5. COTRIM [Concomitant]
  6. KYTRIL [Concomitant]
  7. DEPAKENE [Concomitant]
  8. MUCOSTA [Concomitant]

REACTIONS (3)
  - GLOMERULAR FILTRATION RATE DECREASED [None]
  - RHABDOMYOLYSIS [None]
  - GAIT DISTURBANCE [None]
